FAERS Safety Report 14882921 (Version 1)
Quarter: 2018Q2

REPORT INFORMATION
  Report Type: Spontaneous
  Country: US (occurrence: US)
  Receive Date: 20180511
  Receipt Date: 20180511
  Transmission Date: 20180711
  Serious: Yes (Life-Threatening, Hospitalization)
  Sender: FDA-Public Use
  Company Number: US-TEVA-2018-US-853599

PATIENT
  Age: 65 Year
  Sex: Male

DRUGS (48)
  1. VENETOCLAX. [Suspect]
     Active Substance: VENETOCLAX
     Route: 048
  2. CLARITIN [Concomitant]
     Active Substance: LORATADINE
     Route: 048
  3. ULTRAM [Concomitant]
     Active Substance: TRAMADOL HYDROCHLORIDE
     Route: 048
  4. VENETOCLAX. [Suspect]
     Active Substance: VENETOCLAX
     Route: 048
  5. ABILIFY [Concomitant]
     Active Substance: ARIPIPRAZOLE
     Route: 065
  6. ARIPIPRAZOLE. [Concomitant]
     Active Substance: ARIPIPRAZOLE
     Route: 048
  7. POTASSIUM CHLORIDE. [Concomitant]
     Active Substance: POTASSIUM CHLORIDE
     Route: 048
  8. VENETOCLAX. [Suspect]
     Active Substance: VENETOCLAX
     Route: 048
  9. 0.9 NACL INFUSION [Concomitant]
     Dosage: FREQUENCY PER HOUR CONTINUOUS
     Route: 042
  10. ARIPIPRAZOLE. [Concomitant]
     Active Substance: ARIPIPRAZOLE
     Route: 048
  11. 0.9 NACL INFUSION [Concomitant]
     Dosage: FREQUENCY PER HOUR CONTINUOUS
     Route: 042
  12. 0.9 NACL INFUSION [Concomitant]
     Dosage: 50 ML/HR CONTINUOUS
     Route: 042
  13. 0.9 NACL INFUSION [Concomitant]
     Dosage: CONTINUOUS
     Route: 041
  14. ACYCLOVIR. [Concomitant]
     Active Substance: ACYCLOVIR
     Route: 048
  15. ACYCLOVIR. [Concomitant]
     Active Substance: ACYCLOVIR
     Route: 048
  16. INSULIN REGULAR [Concomitant]
     Active Substance: INSULIN NOS
     Dosage: 1-6 UNITS
     Route: 058
  17. ONDANSETRON [Concomitant]
     Active Substance: ONDANSETRON
     Route: 048
  18. PERICOLACE [Concomitant]
     Dosage: 8.5-50 MG
     Route: 048
  19. PROTONIX [Concomitant]
     Active Substance: PANTOPRAZOLE SODIUM
     Route: 048
  20. TYLENOL [Concomitant]
     Active Substance: ACETAMINOPHEN
     Route: 048
  21. AZACITIDINE. [Suspect]
     Active Substance: AZACITIDINE
     Dosage: DAYS 1-7 OF EACH 28-DAY CYCLE
     Route: 042
  22. VENETOCLAX. [Suspect]
     Active Substance: VENETOCLAX
     Route: 048
  23. AGGRENOX [Concomitant]
     Active Substance: ASPIRIN\DIPYRIDAMOLE
     Dosage: 25-200 MG
     Route: 048
  24. ARIPIPRAZOLE. [Concomitant]
     Active Substance: ARIPIPRAZOLE
     Route: 048
  25. GLIPIZIDE XL [Concomitant]
     Active Substance: GLIPIZIDE
     Route: 048
  26. MAGNESIUM OXIDE. [Concomitant]
     Active Substance: MAGNESIUM OXIDE
     Route: 048
  27. METFORMIN [Concomitant]
     Active Substance: METFORMIN HYDROCHLORIDE
     Route: 048
  28. METFORMIN [Concomitant]
     Active Substance: METFORMIN HYDROCHLORIDE
     Route: 048
  29. TEMAZEPAM. [Concomitant]
     Active Substance: TEMAZEPAM
     Route: 048
  30. VENETOCLAX. [Suspect]
     Active Substance: VENETOCLAX
     Route: 048
  31. 0.9 NACL INFUSION [Concomitant]
     Dosage: 50 ML/HR CONTINUOUS
     Route: 042
  32. ALTEPLASE. [Concomitant]
     Active Substance: ALTEPLASE
     Route: 042
  33. BENADRYL [Concomitant]
     Active Substance: DIPHENHYDRAMINE HYDROCHLORIDE
     Route: 065
  34. KEPPRA XR [Concomitant]
     Active Substance: LEVETIRACETAM
     Route: 048
  35. LIPITOR [Concomitant]
     Active Substance: ATORVASTATIN CALCIUM
     Route: 048
  36. PERIDEX [Concomitant]
     Active Substance: CHLORHEXIDINE GLUCONATE
     Dosage: ROUTE--SWISH AND SWALLOW
  37. POTASSIUM CHLORIDE. [Concomitant]
     Active Substance: POTASSIUM CHLORIDE
     Route: 048
  38. VENETOCLAX. [Suspect]
     Active Substance: VENETOCLAX
     Route: 048
  39. VENETOCLAX. [Suspect]
     Active Substance: VENETOCLAX
     Route: 048
  40. 0.9 NACL INFUSION [Concomitant]
     Dosage: DOSE: 75/ML PER HOUR CONTINUOUS
     Route: 042
  41. ACYCLOVIR. [Concomitant]
     Active Substance: ACYCLOVIR
     Route: 048
  42. ACYCLOVIR. [Concomitant]
     Active Substance: ACYCLOVIR
     Route: 048
  43. ACYCLOVIR. [Concomitant]
     Active Substance: ACYCLOVIR
     Route: 048
  44. ARIPIPRAZOLE. [Concomitant]
     Active Substance: ARIPIPRAZOLE
     Route: 048
  45. ARIPIPRAZOLE. [Concomitant]
     Active Substance: ARIPIPRAZOLE
     Route: 048
  46. LISINOPRIL. [Concomitant]
     Active Substance: LISINOPRIL
     Route: 048
  47. ONDANSETRON [Concomitant]
     Active Substance: ONDANSETRON
     Route: 042
  48. SYNTHROID [Concomitant]
     Active Substance: LEVOTHYROXINE SODIUM
     Route: 048

REACTIONS (1)
  - Pancytopenia [Unknown]
